FAERS Safety Report 9014058 (Version 3)
Quarter: 2014Q1

REPORT INFORMATION
  Report Type: Report from Study
  Country: US (occurrence: US)
  Receive Date: 20130115
  Receipt Date: 20140210
  Transmission Date: 20141002
  Serious: Yes (Hospitalization)
  Sender: FDA-Public Use
  Company Number: US-ROCHE-1176843

PATIENT
  Age: 44 Year
  Sex: Female
  Weight: 105.69 kg

DRUGS (22)
  1. TRASTUZUMAB [Suspect]
     Indication: BREAST CANCER
     Route: 042
     Dates: start: 20121101, end: 20121101
  2. TRASTUZUMAB [Suspect]
     Dosage: 6MG/KG AS PER PROTOCOL. LAST DOSE PRIOR TO FIRST EPISODE ON 27/NOV/2012. LAST DOSE PRIOR TO SECOND E
     Route: 042
  3. CARBOPLATIN [Suspect]
     Indication: BREAST CANCER
     Dosage: LAST DOSE PRIOR TO SAE ON 27 NOV 2012
     Route: 042
     Dates: start: 20121101
  4. DOCETAXEL [Suspect]
     Indication: BREAST CANCER
     Dosage: LAST DOSE PRIOR TO SAE ON 27 NOV 2012
     Route: 042
     Dates: start: 20121101
  5. EFFEXOR XR [Concomitant]
     Route: 065
     Dates: start: 20121012
  6. FLEXERIL (UNITED STATES) [Concomitant]
     Route: 065
     Dates: start: 201208
  7. LORTAB [Concomitant]
     Dosage: 10/500MG
     Route: 065
     Dates: start: 201208
  8. LYRICA [Concomitant]
     Route: 065
     Dates: start: 201208
  9. METFORMIN [Concomitant]
     Route: 065
     Dates: start: 201206
  10. PREDNISONE [Concomitant]
     Route: 065
     Dates: start: 201210
  11. PRILOSEC [Concomitant]
     Route: 065
     Dates: start: 2010
  12. COMPAZINE [Concomitant]
     Route: 065
     Dates: start: 20121101
  13. ZOFRAN [Concomitant]
     Route: 065
     Dates: start: 20121101
  14. TYLENOL [Concomitant]
     Dosage: 1-2 TABS
     Route: 065
     Dates: start: 20121105
  15. IMODIUM [Concomitant]
     Dosage: 1-2 TABS
     Route: 065
     Dates: start: 20121105
  16. NEULASTA [Concomitant]
     Route: 065
     Dates: start: 20121128
  17. SEPTRA DS [Concomitant]
     Route: 065
     Dates: start: 20121227
  18. SINGULAIR [Concomitant]
  19. XANAX [Concomitant]
  20. ALBUTEROL [Concomitant]
     Dosage: TOTAL DAIL DOSE: 1 PUFF QID
     Route: 065
  21. SYMBICORT [Concomitant]
     Dosage: TOTAL DAILY DOSE: 2 PUFFS TWICE DAILY
     Route: 065
  22. PERTUZUMAB [Suspect]
     Indication: BREAST CANCER
     Dosage: LAST DOSE PRIOR TO SAE ON 27 NOV 2012
     Route: 042
     Dates: start: 20121101

REACTIONS (2)
  - Embolism [Not Recovered/Not Resolved]
  - Embolism [Recovered/Resolved]
